FAERS Safety Report 17242407 (Version 1)
Quarter: 2020Q1

REPORT INFORMATION
  Report Type: Spontaneous
  Country: IL (occurrence: IL)
  Receive Date: 20200107
  Receipt Date: 20200107
  Transmission Date: 20200409
  Serious: Yes (Other)
  Sender: FDA-Public Use
  Company Number: IL-ASTRAZENECA-2020SE00181

PATIENT
  Age: 24131 Day
  Sex: Male

DRUGS (2)
  1. XIGDUO XR [Suspect]
     Active Substance: DAPAGLIFLOZIN PROPANEDIOL\METFORMIN HYDROCHLORIDE
     Indication: TYPE 2 DIABETES MELLITUS
     Dosage: 101000.0DF UNKNOWN
     Route: 048
     Dates: start: 20181201, end: 20191226
  2. LANTUS [Concomitant]
     Active Substance: INSULIN GLARGINE
     Indication: TYPE 2 DIABETES MELLITUS

REACTIONS (3)
  - Diabetic ketoacidosis [Recovered/Resolved]
  - Hypoglycaemia [Unknown]
  - Hypophagia [Unknown]

NARRATIVE: CASE EVENT DATE: 20191226
